FAERS Safety Report 12128192 (Version 2)
Quarter: 2016Q1

REPORT INFORMATION
  Report Type: Report from Study
  Country: JP (occurrence: JP)
  Receive Date: 20160229
  Receipt Date: 20160324
  Transmission Date: 20160526
  Serious: Yes (Hospitalization)
  Sender: FDA-Public Use
  Company Number: JP-OTSUKA-2016_004239

PATIENT
  Age: 74 Year
  Sex: Female
  Weight: 56.7 kg

DRUGS (6)
  1. NORVASC [Concomitant]
     Active Substance: AMLODIPINE BESYLATE
     Indication: HYPERTENSION
     Dosage: 2.5 MG, QD
     Route: 048
     Dates: start: 2014
  2. BLINDED *PLACEBO [Suspect]
     Active Substance: INVESTIGATIONAL PRODUCT
     Indication: COGNITIVE DISORDER
     Dosage: UNK
     Route: 048
     Dates: start: 20150728, end: 20151201
  3. BLINDED CILOSTAZOL [Suspect]
     Active Substance: CILOSTAZOL
     Indication: COGNITIVE DISORDER
     Dosage: UNK
     Route: 048
     Dates: start: 20150728, end: 20151201
  4. BLINDED CILOSTAZOL [Suspect]
     Active Substance: CILOSTAZOL
     Dosage: UNK
     Route: 048
     Dates: start: 20151206
  5. BLINDED *PLACEBO [Suspect]
     Active Substance: INVESTIGATIONAL PRODUCT
     Dosage: UNK
     Route: 048
     Dates: start: 20151206
  6. SALICIN [Concomitant]
     Active Substance: SALICIN
     Indication: URETEROLITHIASIS
     Dosage: 75 MG, TID
     Route: 048
     Dates: start: 20150930

REACTIONS (1)
  - Ureterolithiasis [Recovered/Resolved]

NARRATIVE: CASE EVENT DATE: 20151203
